FAERS Safety Report 23140930 (Version 3)
Quarter: 2025Q1

REPORT INFORMATION
  Report Type: Spontaneous
  Country: PR (occurrence: US)
  Receive Date: 20231103
  Receipt Date: 20250325
  Transmission Date: 20250408
  Serious: No
  Sender: JOHNSON AND JOHNSON
  Company Number: PR-VIIV HEALTHCARE LIMITED-US2023AMR149930

PATIENT
  Age: 66 Year
  Sex: Female

DRUGS (7)
  1. RILPIVIRINE [Suspect]
     Active Substance: RILPIVIRINE
     Indication: HIV infection
     Dosage: UNK UNK, Q2M 600 MG/900 MG INJECTION 3 ML VIAL (ONE INTRAMUSCULAR INJECTION IN EACH GLUTEUS)
     Route: 030
     Dates: start: 20220711
  2. CABOTEGRAVIR [Suspect]
     Active Substance: CABOTEGRAVIR
     Indication: HIV infection
     Dosage: UNK UNK, Q2M 600 MG/900 MG INJECTION 3 ML VIAL (ONE INTRAMUSCULAR INJECTION IN EACH GLUTEUS)
     Route: 030
     Dates: start: 20220711
  3. TRADJENTA [Concomitant]
     Active Substance: LINAGLIPTIN
     Indication: Product used for unknown indication
     Route: 065
  4. ROSUVASTATIN CALCIUM [Concomitant]
     Active Substance: ROSUVASTATIN CALCIUM
     Indication: Product used for unknown indication
     Route: 065
  5. CYANOCOBALAMIN [Concomitant]
     Active Substance: CYANOCOBALAMIN
     Indication: Product used for unknown indication
     Route: 065
  6. FARXIGA [Concomitant]
     Active Substance: DAPAGLIFLOZIN PROPANEDIOL
     Indication: Product used for unknown indication
     Route: 065
  7. GABAPENTIN [Concomitant]
     Active Substance: GABAPENTIN
     Indication: Product used for unknown indication
     Route: 065

REACTIONS (14)
  - Injection site swelling [Recovered/Resolved]
  - Vomiting [Not Recovered/Not Resolved]
  - Mycoplasma infection [Recovering/Resolving]
  - Muscle spasms [Not Recovered/Not Resolved]
  - Hypotension [Not Recovered/Not Resolved]
  - Pyrexia [Not Recovered/Not Resolved]
  - Oropharyngeal pain [Unknown]
  - Influenza like illness [Recovered/Resolved]
  - Headache [Recovered/Resolved]
  - Urinary tract infection [Unknown]
  - Headache [Recovered/Resolved]
  - Urinary tract infection [Not Recovered/Not Resolved]
  - Diarrhoea [Not Recovered/Not Resolved]
  - Hypotension [Not Recovered/Not Resolved]

NARRATIVE: CASE EVENT DATE: 20240201
